FAERS Safety Report 19857289 (Version 5)
Quarter: 2025Q1

REPORT INFORMATION
  Report Type: Report from Study
  Country: US (occurrence: US)
  Receive Date: 20210920
  Receipt Date: 20250129
  Transmission Date: 20250409
  Serious: Yes (Other)
  Sender: TAKEDA
  Company Number: US-TAKEDA-2021TUS057808

PATIENT
  Age: 0 Year
  Sex: Male

DRUGS (3)
  1. ADVATE [Suspect]
     Active Substance: ANTIHEMOPHILIC FACTOR, HUMAN RECOMBINANT
     Indication: Product used for unknown indication
  2. ADVATE [Suspect]
     Active Substance: ANTIHEMOPHILIC FACTOR, HUMAN RECOMBINANT
  3. ADVATE [Suspect]
     Active Substance: ANTIHEMOPHILIC FACTOR, HUMAN RECOMBINANT

REACTIONS (7)
  - Contusion [Unknown]
  - Haemorrhage [Unknown]
  - Haemarthrosis [Not Recovered/Not Resolved]
  - Haematoma [Unknown]
  - Skin laceration [Unknown]
  - Accident [Unknown]
  - Head injury [Unknown]

NARRATIVE: CASE EVENT DATE: 20210801
